FAERS Safety Report 13063931 (Version 1)
Quarter: 2016Q4

REPORT INFORMATION
  Report Type: Spontaneous
  Country: US (occurrence: US)
  Receive Date: 20161227
  Receipt Date: 20161227
  Transmission Date: 20170207
  Serious: No
  Sender: FDA-Public Use
  Company Number: US-PFIZER INC-2016595579

PATIENT

DRUGS (1)
  1. CHILDRENS ADVIL [Suspect]
     Active Substance: IBUPROFEN
     Dosage: UNK

REACTIONS (3)
  - Drug effect incomplete [Unknown]
  - Pre-existing condition improved [Unknown]
  - Therapeutic response unexpected [Unknown]
